FAERS Safety Report 16795803 (Version 1)
Quarter: 2019Q3

REPORT INFORMATION
  Report Type: Spontaneous
  Country: US (occurrence: US)
  Receive Date: 20190911
  Receipt Date: 20190911
  Transmission Date: 20191005
  Serious: No
  Sender: FDA-Public Use
  Company Number: US-EMD SERONO-9113922

PATIENT
  Sex: Female
  Weight: 64 kg

DRUGS (3)
  1. METFORMIN [Suspect]
     Active Substance: METFORMIN HYDROCHLORIDE
     Indication: DIABETES MELLITUS
     Dosage: DOSAGE 100 (UNIT UNSPECIFIED)
     Dates: start: 201101, end: 2011
  2. LISINOPRIL. [Suspect]
     Active Substance: LISINOPRIL
     Indication: HYPERTENSION
     Dosage: DOSAGE 10 (UNIT UNSPECIFIED)
     Dates: start: 201010, end: 2011
  3. CARVEDILOL. [Suspect]
     Active Substance: CARVEDILOL
     Indication: HYPERTENSION
     Dosage: DOSAGE 12.5 (UNIT UNSPECIFIED)
     Dates: start: 201010, end: 2011

REACTIONS (3)
  - Muscle spasms [Unknown]
  - Diarrhoea [Unknown]
  - Abdominal pain upper [Unknown]

NARRATIVE: CASE EVENT DATE: 2011
